FAERS Safety Report 18303498 (Version 1)
Quarter: 2020Q3

REPORT INFORMATION
  Report Type: Spontaneous
  Country: FR (occurrence: FR)
  Receive Date: 20200923
  Receipt Date: 20200923
  Transmission Date: 20201103
  Serious: Yes (Death, Other)
  Sender: FDA-Public Use
  Company Number: FR-AMGEN-FRASP2020151515

PATIENT

DRUGS (1)
  1. ADALIMUMAB [Suspect]
     Active Substance: ADALIMUMAB
     Indication: INFLAMMATORY BOWEL DISEASE
     Dosage: UNK
     Route: 065

REACTIONS (2)
  - Inflammatory bowel disease [Not Recovered/Not Resolved]
  - Myocardial infarction [Fatal]
